FAERS Safety Report 5778934-5 (Version None)
Quarter: 2008Q2

REPORT INFORMATION
  Report Type: 
  Country: None (occurrence: None)
  Receive Date: 20080611
  Receipt Date: 20070530
  Transmission Date: 20081010
  Serious: Yes (Disabling)
  Sender: FDA-Public Use
  Company Number: WAES 0705USA05717

PATIENT
  Age: 63 Year
  Sex: Male

DRUGS (1)
  1. COSOPT [Suspect]
     Dosage: 2 DRPS/AM/OPHT
     Route: 047
     Dates: start: 20070514

REACTIONS (2)
  - EYE PAIN [None]
  - LACRIMATION INCREASED [None]
